FAERS Safety Report 9012774 (Version 2)
Quarter: 2013Q1

REPORT INFORMATION
  Report Type: Report from Study
  Country: FR (occurrence: FR)
  Receive Date: 20130114
  Receipt Date: 20130228
  Transmission Date: 20140127
  Serious: Yes (Hospitalization)
  Sender: FDA-Public Use
  Company Number: FR-ROCHE-1176429

PATIENT
  Age: 66 Year
  Sex: Female
  Weight: 47 kg

DRUGS (29)
  1. PACLITAXEL [Suspect]
     Indication: BREAST CANCER
     Dosage: MOST RECENT DOSE 70MG/M2 PRIOR TO SAE ONSET: 05/DEC/2012, LAST DOSE 70 MG/M2
     Route: 042
     Dates: start: 20120524
  2. HEC [Concomitant]
     Indication: EPISTAXIS
     Route: 045
     Dates: start: 20121118
  3. LEXOMIL [Concomitant]
     Indication: INSOMNIA
     Route: 065
     Dates: start: 201204
  4. NASONEX [Concomitant]
     Indication: SEASONAL ALLERGY
  5. AERIUS [Concomitant]
     Indication: SEASONAL ALLERGY
  6. LANSOPRAZOLE [Concomitant]
     Indication: GASTROOESOPHAGEAL REFLUX DISEASE
  7. DETURGYLONE [Concomitant]
     Indication: SEASONAL ALLERGY
     Route: 065
     Dates: start: 20120628, end: 201207
  8. DETURGYLONE [Concomitant]
     Route: 065
     Dates: start: 20121018
  9. FORLAX (FRANCE) [Concomitant]
     Indication: CONSTIPATION
     Route: 065
     Dates: start: 201207, end: 201207
  10. DAFLON (FRANCE) [Concomitant]
     Indication: HAEMORRHOIDS
     Route: 065
     Dates: start: 20120701
  11. BICARBONATE MOUTH RINSE [Concomitant]
     Indication: PROPHYLAXIS
     Route: 065
     Dates: start: 20120927
  12. DOLGIT [Concomitant]
     Indication: PAIN IN EXTREMITY
     Route: 065
     Dates: start: 20120926
  13. BILASKA [Concomitant]
     Indication: SEASONAL ALLERGY
     Route: 065
     Dates: start: 20121018
  14. LYRICA [Concomitant]
     Indication: HYPOAESTHESIA
     Route: 065
     Dates: start: 20121018
  15. FLECTOR (FRANCE) [Concomitant]
     Indication: ARTHRALGIA
     Route: 065
     Dates: start: 20121021
  16. ONDANSETRON [Concomitant]
     Indication: PROPHYLAXIS OF NAUSEA AND VOMITING
     Route: 065
     Dates: start: 20121205, end: 20121205
  17. METHYLPREDNISOLONE [Concomitant]
     Indication: ALLERGY PROPHYLAXIS
     Route: 065
     Dates: start: 20121205, end: 20121205
  18. AZANTAC [Concomitant]
     Dosage: 50MG/2ML
     Route: 065
     Dates: start: 20121205, end: 20121205
  19. POLARAMINE [Concomitant]
     Indication: ALLERGY PROPHYLAXIS
     Route: 065
     Dates: start: 20121205, end: 20121205
  20. TITANOREINE LIDOCAINE [Concomitant]
     Indication: HAEMORRHOIDS
     Route: 065
     Dates: start: 20120825
  21. MAGNE-B6 (FRANCE) [Concomitant]
     Indication: HYPOAESTHESIA
     Route: 065
     Dates: start: 20121024
  22. ADVIL [Concomitant]
     Indication: PAIN IN EXTREMITY
     Route: 065
     Dates: start: 20121101
  23. FUROSEMIDE [Concomitant]
     Indication: DYSPNOEA
     Dosage: 125MG/24H
     Route: 065
     Dates: start: 20121229
  24. PRIMPERAN (FRANCE) [Concomitant]
     Indication: GASTROINTESTINAL DISORDER
     Route: 065
     Dates: start: 20121219, end: 20121221
  25. SPASFON [Concomitant]
     Indication: GASTROINTESTINAL DISORDER
     Route: 065
     Dates: start: 20121219, end: 20121222
  26. GAVISCON (FRANCE) [Concomitant]
     Indication: GASTROOESOPHAGEAL REFLUX DISEASE
     Route: 065
     Dates: start: 20121118
  27. LOVENOX [Concomitant]
     Indication: PULMONARY EMBOLISM
     Route: 065
     Dates: start: 20121229
  28. PLACEBO [Suspect]
     Indication: BREAST CANCER
     Route: 042
  29. BEVACIZUMAB [Suspect]
     Indication: BREAST CANCER
     Dosage: DATE OF MOST RECENT DOSE PRIOR TO AE ONSET: 05/DEC/2012
     Route: 042
     Dates: start: 20120524

REACTIONS (1)
  - Endocarditis [Not Recovered/Not Resolved]
